FAERS Safety Report 7237047-6 (Version None)
Quarter: 2011Q1

REPORT INFORMATION
  Report Type: 
  Country: None (occurrence: None)
  Receive Date: 20110121
  Receipt Date: 20110111
  Transmission Date: 20110831
  Serious: No
  Sender: FDA-Public Use
  Company Number: US-BIOGENIDEC-2011BI002169

PATIENT
  Sex: Male

DRUGS (5)
  1. VITAMIN D [Concomitant]
  2. CALCIUM [Concomitant]
  3. TYSABRI [Suspect]
     Indication: MULTIPLE SCLEROSIS
     Route: 042
     Dates: start: 20091123
  4. VITAMIN D [Concomitant]
  5. CALCIUM [Concomitant]

REACTIONS (3)
  - TRANSIENT ISCHAEMIC ATTACK [None]
  - MUSCULAR WEAKNESS [None]
  - WEIGHT DECREASED [None]
